FAERS Safety Report 7782407-8 (Version None)
Quarter: 2011Q3

REPORT INFORMATION
  Report Type: 
  Country: None (occurrence: None)
  Receive Date: 20110927
  Receipt Date: 20110914
  Transmission Date: 20111222
  Serious: Yes (Death, Hospitalization, Disabling)
  Sender: FDA-Public Use
  Company Number: US-ELI_LILLY_AND_COMPANY-US201109004647

PATIENT

DRUGS (13)
  1. KLONOPIN [Concomitant]
  2. ZYPREXA [Suspect]
     Dosage: 10 MG, UNKNOWN
  3. LEVODOPA [Concomitant]
  4. CLONAZEPAM [Concomitant]
  5. ZINC OXIDE OINTMENT [Concomitant]
  6. ZYPREXA [Suspect]
     Dosage: 20 MG, UNK
  7. ZYPREXA [Suspect]
     Indication: BIPOLAR I DISORDER
     Dosage: 5 MG, QD
  8. AMIODARONE HCL [Concomitant]
  9. INSULIN [Concomitant]
  10. TAMSULOSIN HCL [Concomitant]
  11. VALPROIC ACID [Concomitant]
  12. GUAIFENESIN [Concomitant]
  13. CITALOPRAM [Concomitant]

REACTIONS (5)
  - DEATH [None]
  - PARKINSON'S DISEASE [None]
  - DEMENTIA [None]
  - DEMENTIA ALZHEIMER'S TYPE [None]
  - PNEUMONIA ASPIRATION [None]
